FAERS Safety Report 12521141 (Version 3)
Quarter: 2016Q3

REPORT INFORMATION
  Report Type: Report from Study
  Country: US (occurrence: US)
  Receive Date: 20160701
  Receipt Date: 20160819
  Transmission Date: 20161109
  Serious: Yes (Other)
  Sender: FDA-Public Use
  Company Number: US-JNJFOC-20160324685

PATIENT
  Sex: Female

DRUGS (1)
  1. IMBRUVICA [Suspect]
     Active Substance: IBRUTINIB
     Indication: CHRONIC LYMPHOCYTIC LEUKAEMIA
     Route: 048
     Dates: start: 20150730

REACTIONS (15)
  - Drug dose omission [Not Recovered/Not Resolved]
  - Visual acuity reduced [Not Recovered/Not Resolved]
  - Increased tendency to bruise [Unknown]
  - Blood potassium decreased [Unknown]
  - Bone disorder [Not Recovered/Not Resolved]
  - Sunburn [Unknown]
  - Arthralgia [Not Recovered/Not Resolved]
  - Hernia [Recovering/Resolving]
  - Thrombosis [Recovering/Resolving]
  - Depression [Not Recovered/Not Resolved]
  - Impaired healing [Recovering/Resolving]
  - Bone pain [Not Recovered/Not Resolved]
  - Asthenia [Not Recovered/Not Resolved]
  - Insomnia [Not Recovered/Not Resolved]
  - Fatigue [Not Recovered/Not Resolved]
